FAERS Safety Report 19058788 (Version 7)
Quarter: 2021Q3

REPORT INFORMATION
  Report Type: Spontaneous
  Country: US (occurrence: US)
  Receive Date: 20210325
  Receipt Date: 20210924
  Transmission Date: 20211014
  Serious: Yes (Other)
  Sender: FDA-Public Use
  Company Number: US-BAYER-2021-111648

PATIENT
  Age: 37 Year
  Sex: Male

DRUGS (13)
  1. JIVI [Suspect]
     Active Substance: DAMOCTOCOG ALFA PEGOL
     Dosage: 3157 U, QD (TO TREAT THE ANKLE BLEED)
     Dates: start: 20210314, end: 20210316
  2. JIVI [Suspect]
     Active Substance: DAMOCTOCOG ALFA PEGOL
     Dosage: 2500 U, UNK
     Route: 042
  3. JIVI [Suspect]
     Active Substance: DAMOCTOCOG ALFA PEGOL
     Dosage: 2978 U
     Route: 042
  4. JIVI [Suspect]
     Active Substance: DAMOCTOCOG ALFA PEGOL
     Dosage: 1 DF, ONCE; INFUSED AN ADDITIONAL DOSE FOR BACK PAIN
     Route: 042
  5. JIVI [Suspect]
     Active Substance: DAMOCTOCOG ALFA PEGOL
     Dosage: 12 DF; FOR RIGHT FOOT BLEED ACROSS TOES
     Route: 042
     Dates: start: 20210604
  6. JIVI [Suspect]
     Active Substance: DAMOCTOCOG ALFA PEGOL
     Dosage: 1 DF; USED TO TREAT RIGHT KNEE BLEED
     Dates: start: 20210726
  7. JIVI [Suspect]
     Active Substance: DAMOCTOCOG ALFA PEGOL
     Dosage: UNK; FOR RIGHT KNEE BLEED
     Dates: start: 20210825, end: 20210825
  8. JIVI [Suspect]
     Active Substance: DAMOCTOCOG ALFA PEGOL
     Dosage: 2976 U, UNK
     Route: 042
  9. JIVI [Suspect]
     Active Substance: DAMOCTOCOG ALFA PEGOL
     Dosage: UNK; FOR RIGHT KNEE BLEED
     Dates: start: 20210822, end: 20210822
  10. JIVI [Suspect]
     Active Substance: DAMOCTOCOG ALFA PEGOL
     Dosage: 2976 U
     Route: 042
     Dates: start: 20210416, end: 20210416
  11. JIVI [Suspect]
     Active Substance: DAMOCTOCOG ALFA PEGOL
     Dosage: 3000 U, UNK
     Route: 042
  12. JIVI [Suspect]
     Active Substance: DAMOCTOCOG ALFA PEGOL
     Dosage: 1 DF; FOR RECURRING BLEED
  13. JIVI [Suspect]
     Active Substance: DAMOCTOCOG ALFA PEGOL
     Dosage: 3 DF; USED 3 DOSES SO FAR TO TREAT RIGHT FOOT BLEED
     Route: 042

REACTIONS (7)
  - Haemorrhage [Not Recovered/Not Resolved]
  - Haemorrhage [None]
  - Head injury [Recovered/Resolved]
  - Back pain [Not Recovered/Not Resolved]
  - Haemarthrosis [Recovering/Resolving]
  - Haemarthrosis [None]
  - Haemarthrosis [Recovered/Resolved]

NARRATIVE: CASE EVENT DATE: 20210314
